FAERS Safety Report 19725809 (Version 1)
Quarter: 2021Q3

REPORT INFORMATION
  Report Type: Spontaneous
  Country: NZ (occurrence: NZ)
  Receive Date: 20210820
  Receipt Date: 20210820
  Transmission Date: 20211014
  Serious: Yes (Life-Threatening, Hospitalization, Other)
  Sender: FDA-Public Use
  Company Number: NZ-LUPIN PHARMACEUTICALS INC.-2021-15193

PATIENT
  Age: 15 Year
  Sex: Female

DRUGS (22)
  1. NORADRENALINE [Concomitant]
     Active Substance: NOREPINEPHRINE
     Indication: SHOCK
     Dosage: 0.66MCG/KG/MIN
     Route: 065
  2. METRONIDAZOLE. [Suspect]
     Active Substance: METRONIDAZOLE
     Indication: STREPTOCOCCAL SEPSIS
     Dosage: 500 MILLIGRAM, TID
     Route: 042
  3. NORADRENALINE [Concomitant]
     Active Substance: NOREPINEPHRINE
     Indication: DISTRIBUTIVE SHOCK
     Dosage: 0.45MCG/KG/MIN
     Route: 065
  4. VASOPRESSIN. [Concomitant]
     Active Substance: VASOPRESSIN
     Indication: SHOCK
     Dosage: 2.4U/HR
     Route: 065
  5. CLINDAMYCIN. [Suspect]
     Active Substance: CLINDAMYCIN
     Indication: STREPTOCOCCAL SEPSIS
     Dosage: UNK
     Route: 065
  6. CLINDAMYCIN. [Suspect]
     Active Substance: CLINDAMYCIN
     Indication: PNEUMOCOCCAL SEPSIS
  7. BICARBONATE [Concomitant]
     Active Substance: SODIUM BICARBONATE
     Indication: DIABETIC KETOACIDOSIS
     Dosage: 100 MILLILITER
     Route: 065
  8. PIPERACILLIN/TAZOBACTAM [Suspect]
     Active Substance: PIPERACILLIN SODIUM\TAZOBACTAM SODIUM
     Indication: STREPTOCOCCAL SEPSIS
     Dosage: 4.5 GRAM, QID
     Route: 042
  9. ADRENALINE [Concomitant]
     Active Substance: EPINEPHRINE
     Indication: SHOCK
     Dosage: 0.05MCG/KG/MIN
     Route: 065
  10. ACTRAPID [Concomitant]
     Active Substance: INSULIN HUMAN
     Indication: DIABETIC KETOACIDOSIS
     Dosage: 0.1UNIT/K
     Route: 042
  11. VANCOMYCIN [Suspect]
     Active Substance: VANCOMYCIN
     Indication: PNEUMOCOCCAL SEPSIS
  12. METRONIDAZOLE. [Suspect]
     Active Substance: METRONIDAZOLE
     Indication: PNEUMOCOCCAL SEPSIS
  13. CEFTRIAXONE. [Suspect]
     Active Substance: CEFTRIAXONE
     Indication: STREPTOCOCCAL SEPSIS
     Dosage: 2 GRAM, QD
     Route: 042
  14. ADRENALINE [Concomitant]
     Active Substance: EPINEPHRINE
     Indication: DISTRIBUTIVE SHOCK
  15. MEROPENEM. [Suspect]
     Active Substance: MEROPENEM
     Indication: PNEUMOCOCCAL SEPSIS
  16. VASOPRESSIN. [Concomitant]
     Active Substance: VASOPRESSIN
     Indication: DISTRIBUTIVE SHOCK
  17. MEROPENEM. [Suspect]
     Active Substance: MEROPENEM
     Indication: STREPTOCOCCAL SEPSIS
     Dosage: UNK
     Route: 065
  18. SALINE [Concomitant]
     Active Substance: SODIUM CHLORIDE
     Indication: DIABETIC KETOACIDOSIS
     Dosage: TWO BOLUSES OF 10ML/KG
     Route: 065
  19. CEFTRIAXONE. [Suspect]
     Active Substance: CEFTRIAXONE
     Indication: PNEUMOCOCCAL SEPSIS
  20. VANCOMYCIN [Suspect]
     Active Substance: VANCOMYCIN
     Indication: STREPTOCOCCAL SEPSIS
     Dosage: UNK
     Route: 065
  21. PIPERACILLIN/TAZOBACTAM [Suspect]
     Active Substance: PIPERACILLIN SODIUM\TAZOBACTAM SODIUM
     Indication: PNEUMOCOCCAL SEPSIS
  22. ACTRAPID [Concomitant]
     Active Substance: INSULIN HUMAN
     Dosage: 0.5 UNITS/KG/DAY
     Route: 042

REACTIONS (1)
  - Drug ineffective [Unknown]
